APPROVED DRUG PRODUCT: ATROPINE SULFATE
Active Ingredient: ATROPINE SULFATE
Strength: 1%
Dosage Form/Route: SOLUTION/DROPS;OPHTHALMIC
Application: N213581 | Product #001
Applicant: BAUSCH AND LOMB INC
Approved: Mar 15, 2022 | RLD: Yes | RS: Yes | Type: RX